FAERS Safety Report 25171601 (Version 3)
Quarter: 2025Q2

REPORT INFORMATION
  Report Type: Spontaneous
  Country: US (occurrence: US)
  Receive Date: 20250408
  Receipt Date: 20250430
  Transmission Date: 20250716
  Serious: No
  Sender: ROCHE
  Company Number: US-ROCHE-10000246651

PATIENT
  Age: 19 Year
  Sex: Female
  Weight: 52.163 kg

DRUGS (4)
  1. ACTEMRA ACTPEN [Suspect]
     Active Substance: TOCILIZUMAB
     Indication: Juvenile idiopathic arthritis
     Dosage: UNDER THE SKIN, 162 MG/0.9 MG
     Route: 058
     Dates: start: 202112
  2. ACTEMRA ACTPEN [Suspect]
     Active Substance: TOCILIZUMAB
     Route: 058
     Dates: start: 202201
  3. MOTRIN IB [Concomitant]
     Active Substance: IBUPROFEN
     Dosage: 1 TABLET 4 TIMES EVERY DAY WITH FOOD AS NEEDED
     Route: 048
     Dates: end: 20250414
  4. MELOXICAM [Concomitant]
     Active Substance: MELOXICAM
     Indication: Pain
     Dosage: AS NEEDED
     Route: 048

REACTIONS (6)
  - Device defective [Unknown]
  - Device mechanical issue [Unknown]
  - Device defective [Unknown]
  - Urticaria [Recovered/Resolved]
  - Alopecia [Not Recovered/Not Resolved]
  - Injection site reaction [Unknown]
